FAERS Safety Report 5515679-0 (Version None)
Quarter: 2007Q4

REPORT INFORMATION
  Report Type: 
  Country: None (occurrence: None)
  Receive Date: 20071113
  Receipt Date: 20071015
  Transmission Date: 20080405
  Serious: No
  Sender: FDA-Public Use
  Company Number: A0671291A

PATIENT
  Age: 72 Year
  Sex: Male
  Weight: 134.5 kg

DRUGS (8)
  1. COREG [Suspect]
     Indication: LEFT VENTRICULAR DYSFUNCTION
     Dosage: 25MG TWICE PER DAY
     Route: 048
     Dates: start: 20070401
  2. WARFARIN SODIUM [Concomitant]
  3. INSULIN [Concomitant]
  4. METFORMIN HCL [Concomitant]
  5. GLYBURIDE [Concomitant]
  6. PRAVASTATIN [Concomitant]
  7. BENICAR [Concomitant]
     Dosage: 20MG PER DAY
     Route: 048
  8. BYETTA [Concomitant]
     Dosage: 10MG TWICE PER DAY
     Route: 058

REACTIONS (3)
  - CONDITION AGGRAVATED [None]
  - FATIGUE [None]
  - HYPOTENSION [None]
